FAERS Safety Report 10528789 (Version 1)
Quarter: 2014Q4

REPORT INFORMATION
  Report Type: Spontaneous
  Country: US (occurrence: None)
  Receive Date: 20141017
  Receipt Date: 20141017
  Transmission Date: 20150528
  Serious: Yes (Life-Threatening, Hospitalization)
  Sender: FDA-Public Use
  Company Number: None

PATIENT
  Age: 88 Year
  Sex: Male

DRUGS (1)
  1. RIVAROXABAN [Suspect]
     Active Substance: RIVAROXABAN
     Route: 048
     Dates: end: 20140208

REACTIONS (5)
  - Hypertension [None]
  - Tachycardia [None]
  - Epistaxis [None]
  - Gastrointestinal haemorrhage [None]
  - Iron deficiency anaemia [None]

NARRATIVE: CASE EVENT DATE: 20140208
